FAERS Safety Report 8095789-7 (Version None)
Quarter: 2012Q1

REPORT INFORMATION
  Report Type: 
  Country: None (occurrence: None)
  Receive Date: 20120129
  Receipt Date: 20111213
  Transmission Date: 20120608
  Serious: No
  Sender: FDA-Public Use
  Company Number: US-ABBOTT-11P-163-0883316-00

PATIENT
  Sex: Female
  Weight: 61.29 kg

DRUGS (5)
  1. BENADRYL [Concomitant]
     Indication: PRODUCT USED FOR UNKNOWN INDICATION
  2. HUMIRA [Suspect]
     Indication: CROHN'S DISEASE
     Dates: start: 20060101
  3. NORETHINDRONE [Concomitant]
     Indication: CONTRACEPTION
  4. HUMIRA [Suspect]
     Dates: start: 20111129
  5. MULTI-VITAMINS [Concomitant]
     Indication: PRODUCT USED FOR UNKNOWN INDICATION

REACTIONS (3)
  - CROHN'S DISEASE [None]
  - RASH [None]
  - URTICARIA [None]
